FAERS Safety Report 9320251 (Version 2)
Quarter: 2013Q2

REPORT INFORMATION
  Report Type: Spontaneous
  Country: US (occurrence: US)
  Receive Date: 20130530
  Receipt Date: 20130625
  Transmission Date: 20140414
  Serious: Yes (Hospitalization)
  Sender: FDA-Public Use
  Company Number: US-009507513-1305USA014608

PATIENT
  Age: 13 Year
  Sex: Male

DRUGS (1)
  1. DULERA [Suspect]
     Indication: ASTHMA
     Dosage: 100MCG/5MCG/ 2 INHALATIONS TWICE DAILY
     Route: 055
     Dates: start: 20130515, end: 20130517

REACTIONS (1)
  - Type 1 diabetes mellitus [Not Recovered/Not Resolved]
